FAERS Safety Report 24636842 (Version 1)
Quarter: 2024Q4

REPORT INFORMATION
  Report Type: Spontaneous
  Country: US (occurrence: US)
  Receive Date: 20241119
  Receipt Date: 20241119
  Transmission Date: 20250114
  Serious: Yes (Other)
  Sender: KINDEVA DRUG DELIVERY L.P.
  Company Number: US-Kindeva Drug Delivery L.P.-2165375

PATIENT

DRUGS (1)
  1. ALBUTEROL SULFATE [Suspect]
     Active Substance: ALBUTEROL SULFATE

REACTIONS (3)
  - Product complaint [Unknown]
  - Accidental exposure to product [Unknown]
  - Choking [Unknown]
